FAERS Safety Report 6938725-6 (Version None)
Quarter: 2010Q3

REPORT INFORMATION
  Report Type: 
  Country: None (occurrence: None)
  Receive Date: 20100824
  Receipt Date: 20100818
  Transmission Date: 20110219
  Serious: Yes (Death)
  Sender: FDA-Public Use
  Company Number: PHHY2010CA54880

PATIENT
  Sex: Female
  Weight: 47.7 kg

DRUGS (1)
  1. EXELON [Suspect]
     Route: 062

REACTIONS (1)
  - DEATH [None]
